FAERS Safety Report 5295445-4 (Version None)
Quarter: 2007Q2

REPORT INFORMATION
  Report Type: 
  Country: None (occurrence: None)
  Receive Date: 20070412
  Receipt Date: 20070405
  Transmission Date: 20071010
  Serious: Yes (Other)
  Sender: FDA-Public Use
  Company Number: ES-MERCK-0704USA01174

PATIENT
  Age: 44 Year
  Sex: Female

DRUGS (8)
  1. DECADRON [Suspect]
     Indication: ACUTE LYMPHOCYTIC LEUKAEMIA RECURRENT
     Route: 065
  2. DECADRON [Suspect]
     Indication: LEUKAEMIA RECURRENT
     Route: 065
  3. CYCLOPHOSPHAMIDE [Suspect]
     Indication: LYMPHOCYTIC LEUKAEMIA
     Route: 065
  4. CYCLOPHOSPHAMIDE [Suspect]
     Indication: LEUKAEMIA RECURRENT
     Route: 065
  5. VINCRISTINE SULFATE [Suspect]
     Indication: LYMPHOCYTIC LEUKAEMIA
     Route: 065
  6. VINCRISTINE SULFATE [Suspect]
     Indication: LEUKAEMIA RECURRENT
     Route: 065
  7. DOXORUBICIN [Suspect]
     Indication: LYMPHOCYTIC LEUKAEMIA
     Route: 065
  8. DOXORUBICIN [Suspect]
     Indication: LEUKAEMIA RECURRENT
     Route: 065

REACTIONS (4)
  - CANDIDA PNEUMONIA [None]
  - NEUTROPENIA [None]
  - PYELONEPHRITIS FUNGAL [None]
  - SEPTIC SHOCK [None]
